FAERS Safety Report 18524606 (Version 2)
Quarter: 2020Q4

REPORT INFORMATION
  Report Type: Spontaneous
  Country: JP (occurrence: JP)
  Receive Date: 20201119
  Receipt Date: 20201222
  Transmission Date: 20210114
  Serious: Yes (Other)
  Sender: FDA-Public Use
  Company Number: JP-009507513-2011JPN001184J

PATIENT
  Age: 8 Decade
  Sex: Male

DRUGS (3)
  1. 5-FU [Suspect]
     Active Substance: FLUOROURACIL
     Indication: HYPOPHARYNGEAL CANCER RECURRENT
     Dosage: 800 MILLIGRAM/SQ. METER, Q3W
     Route: 042
     Dates: start: 202010, end: 2020
  2. KEYTRUDA [Suspect]
     Active Substance: PEMBROLIZUMAB
     Indication: HYPOPHARYNGEAL CANCER RECURRENT
     Dosage: 200 MILLIGRAM, Q3W
     Route: 041
     Dates: start: 202010, end: 2020
  3. CISPLATIN. [Suspect]
     Active Substance: CISPLATIN
     Indication: HYPOPHARYNGEAL CANCER RECURRENT
     Dosage: 80 MILLIGRAM/SQ. METER, Q3W
     Route: 042
     Dates: start: 202010, end: 2020

REACTIONS (2)
  - Meningitis [Recovered/Resolved]
  - Malignant neoplasm progression [Unknown]

NARRATIVE: CASE EVENT DATE: 202010
